FAERS Safety Report 10459122 (Version 1)
Quarter: 2014Q3

REPORT INFORMATION
  Report Type: Spontaneous
  Country: US (occurrence: None)
  Receive Date: 20140915
  Receipt Date: 20140915
  Transmission Date: 20150326
  Serious: Yes (Hospitalization, Other)
  Sender: FDA-Public Use
  Company Number: 2014COV00107

PATIENT
  Age: 85 Year
  Sex: Female

DRUGS (5)
  1. ATENOLOL. [Suspect]
     Active Substance: ATENOLOL
  2. RIOCIGUAT [Concomitant]
     Active Substance: RIOCIGUAT
  3. LETAIRIS [Suspect]
     Active Substance: AMBRISENTAN
     Dosage: 1X/DAY
     Dates: start: 20130205
  4. COUMADIN [Suspect]
     Active Substance: WARFARIN SODIUM
     Indication: BACK PAIN
  5. LANOXIN [Suspect]
     Active Substance: DIGOXIN

REACTIONS (11)
  - Hyperkalaemia [None]
  - Toxicity to various agents [None]
  - Headache [None]
  - Dizziness [None]
  - Renal failure [None]
  - Weight increased [None]
  - Blood pressure diastolic decreased [None]
  - Heart rate decreased [None]
  - Gastric ulcer haemorrhage [None]
  - Anaemia [None]
  - Therapy cessation [None]
